FAERS Safety Report 9878067 (Version 1)
Quarter: 2014Q1

REPORT INFORMATION
  Report Type: Spontaneous
  Country: US (occurrence: US)
  Receive Date: 20140206
  Receipt Date: 20140206
  Transmission Date: 20141002
  Serious: No
  Sender: FDA-Public Use
  Company Number: US-BAYER-2014-012561

PATIENT
  Age: 70 Year
  Sex: Female

DRUGS (1)
  1. MENOSTAR [Suspect]
     Indication: HOT FLUSH
     Dosage: UNK UNK, OW
     Route: 062
     Dates: start: 2004

REACTIONS (5)
  - Product adhesion issue [None]
  - Drug ineffective [None]
  - Feeling cold [None]
  - Feeling abnormal [None]
  - Medication error [None]
